FAERS Safety Report 24772029 (Version 1)
Quarter: 2024Q4

REPORT INFORMATION
  Report Type: Spontaneous
  Country: US (occurrence: US)
  Receive Date: 20241224
  Receipt Date: 20241224
  Transmission Date: 20250114
  Serious: No
  Sender: SANOFI AVENTIS
  Company Number: US-SA-2024SA379501

PATIENT
  Age: 59 Year
  Sex: Male
  Weight: 70.91 kg

DRUGS (1)
  1. DUPIXENT [Suspect]
     Active Substance: DUPILUMAB
     Indication: Dermatitis atopic
     Dosage: 300MG, (FREQUENCY: OTHER)
     Route: 058
     Dates: end: 20241117

REACTIONS (4)
  - Eye discharge [Unknown]
  - Swelling of eyelid [Unknown]
  - Vision blurred [Unknown]
  - Eye pruritus [Unknown]
